FAERS Safety Report 5412769-8 (Version None)
Quarter: 2007Q3

REPORT INFORMATION
  Report Type: 
  Country: None (occurrence: None)
  Receive Date: 20070809
  Receipt Date: 20070724
  Transmission Date: 20080115
  Serious: Yes (Death, Hospitalization, Other)
  Sender: FDA-Public Use
  Company Number: 100#08#2007-02851

PATIENT
  Age: 58 Year
  Sex: Male

DRUGS (8)
  1. AMIODARONE HCL [Suspect]
     Indication: VENTRICULAR TACHYCARDIA
     Dosage: 200 MG, 200 MG
  2. AMIODARONE HCL [Suspect]
     Indication: VENTRICULAR TACHYCARDIA
     Dosage: 200 MG, 200 MG
  3. ACETYLSALICYLIC ACID(ACETYLSALICYLIC ACID) (ACETYLSALICYLIC ACID) [Concomitant]
  4. FUROSEMIDE(FUROSEMIDE) (FUROSEMIDE) [Concomitant]
  5. DILTIAZEM HYDROCHLORIDE(DILTIAZEM HYDROCHLORIDE) (DILTIAZEM HYDROCHLOR [Concomitant]
  6. ISOSORBIDE DINITRATE(ISOSORBIDE DINITRATE) (ISOSORBIDE DINITRATE) [Concomitant]
  7. DIGOXIN [Concomitant]
  8. FAMOTIDINE [Concomitant]

REACTIONS (18)
  - BLOOD ALBUMIN DECREASED [None]
  - CONFUSIONAL STATE [None]
  - CORNEAL DEPOSITS [None]
  - DRUG TOXICITY [None]
  - GENERAL PHYSICAL HEALTH DETERIORATION [None]
  - HAEMOGLOBIN DECREASED [None]
  - HEPATIC CIRRHOSIS [None]
  - HEPATIC ENCEPHALOPATHY [None]
  - HEPATORENAL SYNDROME [None]
  - LETHARGY [None]
  - LIVER DISORDER [None]
  - METABOLIC ACIDOSIS [None]
  - OEDEMA PERIPHERAL [None]
  - PORTAL HYPERTENSION [None]
  - PORTAL HYPERTENSIVE GASTROPATHY [None]
  - PROTHROMBIN TIME PROLONGED [None]
  - SPLENOMEGALY [None]
  - VARICES OESOPHAGEAL [None]
